FAERS Safety Report 15790241 (Version 3)
Quarter: 2019Q1

REPORT INFORMATION
  Report Type: Spontaneous
  Country: US (occurrence: US)
  Receive Date: 20190104
  Receipt Date: 20190111
  Transmission Date: 20190417
  Serious: No
  Sender: FDA-Public Use
  Company Number: US-SA-2019SA001409

PATIENT
  Age: 77 Year
  Sex: Female

DRUGS (1)
  1. ALIROCUMAB [Suspect]
     Active Substance: ALIROCUMAB
     Indication: BLOOD CHOLESTEROL
     Dosage: 75 MG, QOW
     Route: 058
     Dates: start: 20181117

REACTIONS (4)
  - Device use issue [Unknown]
  - Underdose [Unknown]
  - Injection site haemorrhage [Unknown]
  - Trichorrhexis [Unknown]

NARRATIVE: CASE EVENT DATE: 20181230
